FAERS Safety Report 10068082 (Version 1)
Quarter: 2014Q2

REPORT INFORMATION
  Report Type: Report from Study
  Country: DE (occurrence: DE)
  Receive Date: 20140409
  Receipt Date: 20140409
  Transmission Date: 20141212
  Serious: Yes (Hospitalization)
  Sender: FDA-Public Use
  Company Number: DE-JNJFOC-20140404881

PATIENT
  Age: 75 Year
  Sex: Male
  Weight: 79 kg

DRUGS (7)
  1. XARELTO [Suspect]
     Indication: ATRIAL FIBRILLATION
     Route: 048
     Dates: start: 20121204
  2. XARELTO [Suspect]
     Indication: CEREBROVASCULAR ACCIDENT PROPHYLAXIS
     Route: 048
     Dates: start: 20121204
  3. SIMVASTATIN [Concomitant]
     Route: 065
     Dates: start: 20110315
  4. RAMIPRIL [Concomitant]
     Route: 065
     Dates: start: 20100202
  5. TOREM [Concomitant]
     Route: 065
     Dates: start: 20100220
  6. METOPROLOL [Concomitant]
     Route: 065
     Dates: start: 20100202
  7. SPIRONOLACTON [Concomitant]
     Route: 065
     Dates: start: 20100202

REACTIONS (1)
  - Thrombosis [Recovering/Resolving]
